FAERS Safety Report 8844358 (Version 1)
Quarter: 2012Q4

REPORT INFORMATION
  Report Type: 
  Country: US (occurrence: US)
  Receive Date: 20121017
  Receipt Date: 20121017
  Transmission Date: 20130627
  Serious: Yes (Other)
  Sender: FDA-Public Use
  Company Number: US-JNJFOC-20121006987

PATIENT
  Age: 25 Year
  Sex: Female

DRUGS (2)
  1. LISTERINE ANTISEPTIC [Suspect]
     Indication: PRODUCT USED FOR UNKNOWN INDICATION
     Route: 048
  2. PRESCRIPTION MEDICATIONS UNSPECIFIED [Concomitant]
     Indication: HYPERTENSION
     Route: 065

REACTIONS (2)
  - Drug abuse [Unknown]
  - Abnormal behaviour [Recovered/Resolved]
